FAERS Safety Report 14613299 (Version 1)
Quarter: 2018Q1

REPORT INFORMATION
  Report Type: Spontaneous
  Country: US (occurrence: US)
  Receive Date: 20180307
  Receipt Date: 20180307
  Transmission Date: 20180509
  Serious: Yes (Hospitalization)
  Sender: FDA-Public Use
  Company Number: None

PATIENT
  Sex: Male
  Weight: 93 kg

DRUGS (3)
  1. DEXAMETHASONE. [Suspect]
     Active Substance: DEXAMETHASONE
     Dates: end: 20180222
  2. VELCADE [Suspect]
     Active Substance: BORTEZOMIB
     Dates: end: 20180222
  3. LENALIDOMIDE (CC-5013) [Suspect]
     Active Substance: LENALIDOMIDE
     Dates: end: 20180222

REACTIONS (4)
  - Blood creatinine increased [None]
  - Dyspnoea [None]
  - Cardiac failure congestive [None]
  - Haemoglobin decreased [None]

NARRATIVE: CASE EVENT DATE: 20180222
